FAERS Safety Report 10260308 (Version 2)
Quarter: 2014Q4

REPORT INFORMATION
  Report Type: Spontaneous
  Country: US (occurrence: US)
  Receive Date: 20140625
  Receipt Date: 20141222
  Transmission Date: 20150528
  Serious: No
  Sender: FDA-Public Use
  Company Number: US-SA-2014SA062461

PATIENT
  Age: 68 Year
  Sex: Male

DRUGS (17)
  1. PANTHENOL/RETINOL/THIAMINE HYDROCHLORIDE/ASCORBIC ACID/ERGOCALCIFEROL/FOLIC ACID/RIBOFLAVIN/NICOTINA [Concomitant]
  2. SIMVASTATIN. [Concomitant]
     Active Substance: SIMVASTATIN
  3. CYCLOBENZAPRINE [Concomitant]
     Active Substance: CYCLOBENZAPRINE
     Route: 061
  4. MECLIZINE [Concomitant]
     Active Substance: MECLIZINE\MECLIZINE HYDROCHLORIDE
  5. AUBAGIO [Suspect]
     Active Substance: TERIFLUNOMIDE
     Indication: MULTIPLE SCLEROSIS
     Route: 048
     Dates: end: 201408
  6. COQ10 [Concomitant]
     Active Substance: UBIDECARENONE
  7. KETAMINE [Concomitant]
     Active Substance: KETAMINE
     Route: 061
  8. TECFIDERA [Concomitant]
     Active Substance: DIMETHYL FUMARATE
  9. LIDOCAINE. [Concomitant]
     Active Substance: LIDOCAINE
  10. POLYETHYLENE GLYCOL [Concomitant]
     Active Substance: POLYETHYLENE GLYCOLS
  11. TRAMADOL [Concomitant]
     Active Substance: TRAMADOL
  12. VITAMIN D [Concomitant]
     Active Substance: CHOLECALCIFEROL
  13. BACLOFEN. [Concomitant]
     Active Substance: BACLOFEN
     Route: 061
  14. KRILL OIL [Concomitant]
     Active Substance: DIETARY SUPPLEMENT
  15. GABAPENTIN. [Concomitant]
     Active Substance: GABAPENTIN
     Route: 061
  16. TOLTERODINE L-TARTRATE [Concomitant]
     Dosage: LONG ACTING
  17. LEVOTHYROXINE [Concomitant]
     Active Substance: LEVOTHYROXINE

REACTIONS (7)
  - Pruritus [Unknown]
  - Nasal congestion [Unknown]
  - Diarrhoea [Unknown]
  - Fatigue [Unknown]
  - Rhinorrhoea [Unknown]
  - Asthenia [Unknown]
  - Myalgia [Unknown]
